FAERS Safety Report 14326687 (Version 2)
Quarter: 2018Q1

REPORT INFORMATION
  Report Type: Spontaneous
  Country: US (occurrence: US)
  Receive Date: 20171227
  Receipt Date: 20180130
  Transmission Date: 20180509
  Serious: No
  Sender: FDA-Public Use
  Company Number: US-009507513-1712USA000435

PATIENT
  Sex: Female
  Weight: 95.24 kg

DRUGS (2)
  1. NEXPLANON [Suspect]
     Active Substance: ETONOGESTREL
     Indication: CONTRACEPTION
     Dosage: 1 IMPLANT, EVERY 4 YEARS
     Route: 059
     Dates: start: 20140610, end: 20170610
  2. NEXPLANON [Suspect]
     Active Substance: ETONOGESTREL
     Dosage: UNK
     Route: 059

REACTIONS (8)
  - Vaginal lesion [Unknown]
  - Weight increased [Unknown]
  - Muscle tightness [Unknown]
  - Breast pain [Unknown]
  - Implant site pruritus [Unknown]
  - Stress [Unknown]
  - Vaginal discharge [Unknown]
  - Alopecia [Unknown]
